FAERS Safety Report 17580962 (Version 7)
Quarter: 2020Q2

REPORT INFORMATION
  Report Type: Report from Study
  Country: JP (occurrence: JP)
  Receive Date: 20200325
  Receipt Date: 20200501
  Transmission Date: 20200713
  Serious: Yes (Hospitalization)
  Sender: FDA-Public Use
  Company Number: JP-EISAI MEDICAL RESEARCH-EC-2020-072196

PATIENT
  Age: 81 Year
  Sex: Female
  Weight: 45.5 kg

DRUGS (27)
  1. LENVATINIB [Suspect]
     Active Substance: LENVATINIB
     Route: 048
     Dates: start: 20200224, end: 20200224
  2. JANUVIA [Concomitant]
     Active Substance: SITAGLIPTIN PHOSPHATE
     Dates: start: 20191120, end: 20200310
  3. THYRADIN [Concomitant]
     Active Substance: LEVOTHYROXINE
     Dates: start: 20191205
  4. NIFEDIPINE. [Concomitant]
     Active Substance: NIFEDIPINE
     Dates: start: 20191205, end: 20200227
  5. ZOLPIDEM TARTRATE. [Concomitant]
     Active Substance: ZOLPIDEM TARTRATE
     Dates: start: 201807
  6. GLANATEC [Concomitant]
     Active Substance: RIPASUDIL HYDROCHLORIDE DIHYDRATE
     Dates: start: 201911
  7. VALSARTAN. [Concomitant]
     Active Substance: VALSARTAN
     Dates: start: 20191116, end: 20200310
  8. PIARLE [Concomitant]
     Active Substance: LACTULOSE
     Dates: start: 20191121, end: 20200227
  9. PEMBROLIZUMAB. [Suspect]
     Active Substance: PEMBROLIZUMAB
     Route: 041
     Dates: start: 20200227, end: 20200227
  10. AMOXICILLIN. [Suspect]
     Active Substance: AMOXICILLIN
     Indication: INFECTION PROPHYLAXIS
     Dates: start: 20200227, end: 20200301
  11. ALPHAGAN P [Concomitant]
     Active Substance: BRIMONIDINE TARTRATE
     Dates: start: 201905
  12. COLAC II [Concomitant]
     Dates: start: 201510
  13. LENVATINIB [Suspect]
     Active Substance: LENVATINIB
     Indication: HEPATOCELLULAR CARCINOMA
     Dosage: STARTING DOSE AT 8MG, FLUCTUATED DOSE
     Route: 048
     Dates: start: 20191114, end: 20200223
  14. REZALTAS [Concomitant]
     Active Substance: AZELNIDIPINE\OLMESARTAN MEDOXOMIL
     Dates: start: 201807, end: 20200310
  15. MIKELUNA [Concomitant]
     Dates: start: 201911
  16. MOSAPRIDE CITRATE [Concomitant]
     Active Substance: MOSAPRIDE CITRATE
     Dates: start: 20191219, end: 20200331
  17. XYLOCAINE [Concomitant]
     Active Substance: LIDOCAINE HYDROCHLORIDE
     Dates: start: 20200227, end: 20200227
  18. DILTIAZEM HYDROCHLORIDE. [Concomitant]
     Active Substance: DILTIAZEM HYDROCHLORIDE
     Dates: start: 20191206, end: 20200310
  19. FUROSEMIDE. [Concomitant]
     Active Substance: FUROSEMIDE
     Dates: start: 20191210
  20. HIRUDOID SOFT [Concomitant]
     Active Substance: GLYCOSAMINOGLYCANS
     Dates: start: 20200109, end: 20200220
  21. ETIZOLAM [Concomitant]
     Active Substance: ETIZOLAM
     Dates: start: 20200206, end: 20200225
  22. JUZENTAIHOTO [Concomitant]
     Active Substance: HERBALS
     Dates: start: 20191219, end: 20200331
  23. PANDEL [Concomitant]
     Active Substance: HYDROCORTISONE PROBUTATE
     Dates: start: 20200109, end: 20200220
  24. RESTAMIN [Concomitant]
     Active Substance: DIPHENHYDRAMINE
     Dates: start: 20200109, end: 20200220
  25. LOXOPROFEN SODIUM [Concomitant]
     Active Substance: LOXOPROFEN SODIUM
     Dates: start: 20200227, end: 20200229
  26. PEMBROLIZUMAB. [Suspect]
     Active Substance: PEMBROLIZUMAB
     Indication: HEPATOCELLULAR CARCINOMA
     Route: 041
     Dates: start: 20191114, end: 20200206
  27. LANSOPRAZOLE. [Concomitant]
     Active Substance: LANSOPRAZOLE
     Dates: start: 20191205, end: 20200311

REACTIONS (1)
  - Enterocolitis [Recovered/Resolved]

NARRATIVE: CASE EVENT DATE: 20200228
